FAERS Safety Report 9193017 (Version 1)
Quarter: 2013Q1

REPORT INFORMATION
  Report Type: Spontaneous
  Country: US (occurrence: US)
  Receive Date: 20130327
  Receipt Date: 20130327
  Transmission Date: 20140127
  Serious: No
  Sender: FDA-Public Use
  Company Number: US-TEVA-394810USA

PATIENT
  Age: 59 Year
  Sex: Female

DRUGS (1)
  1. ACTIQ [Suspect]

REACTIONS (1)
  - Intentional drug misuse [Unknown]
